FAERS Safety Report 5687977-1 (Version None)
Quarter: 2008Q1

REPORT INFORMATION
  Report Type: 
  Country: None (occurrence: None)
  Receive Date: 20080328
  Receipt Date: 20080312
  Transmission Date: 20080703
  Serious: Yes (Other)
  Sender: FDA-Public Use
  Company Number: US-BAYER-200817482NA

PATIENT
  Sex: Male

DRUGS (3)
  1. LEVITRA [Suspect]
     Indication: ERECTILE DYSFUNCTION
     Route: 048
  2. FLOMAX [Concomitant]
  3. MANY BLOOD PRESSURE PILLS [Concomitant]

REACTIONS (3)
  - DIZZINESS [None]
  - HYPOTENSION [None]
  - PRESYNCOPE [None]
